FAERS Safety Report 20645544 (Version 2)
Quarter: 2022Q2

REPORT INFORMATION
  Report Type: Spontaneous
  Country: JP (occurrence: JP)
  Receive Date: 20220328
  Receipt Date: 20220412
  Transmission Date: 20220720
  Serious: Yes (Death, Other)
  Sender: FDA-Public Use
  Company Number: JP-JAZZ-2022-JP-002406

PATIENT
  Age: 10 Year
  Sex: Female

DRUGS (1)
  1. DEFITELIO [Suspect]
     Active Substance: DEFIBROTIDE SODIUM
     Indication: Venoocclusive liver disease
     Dosage: 25 MG/KG (25 MG/KG/24 HOURS)
     Route: 042
     Dates: start: 20220125, end: 20220312

REACTIONS (5)
  - Venoocclusive liver disease [Fatal]
  - Systemic candida [Fatal]
  - Gastrointestinal haemorrhage [Not Recovered/Not Resolved]
  - Acute graft versus host disease in intestine [Unknown]
  - Diarrhoea [Not Recovered/Not Resolved]

NARRATIVE: CASE EVENT DATE: 20220126
